FAERS Safety Report 12890084 (Version 1)
Quarter: 2016Q4

REPORT INFORMATION
  Report Type: Report from Study
  Country: CA (occurrence: CA)
  Receive Date: 20161027
  Receipt Date: 20161027
  Transmission Date: 20170207
  Serious: Yes (Death, Other)
  Sender: FDA-Public Use
  Company Number: CA-GILEAD-2016-0239666

PATIENT
  Age: 59 Year
  Sex: Male

DRUGS (15)
  1. ELAVIL [Concomitant]
     Active Substance: AMITRIPTYLINE HYDROCHLORIDE
  2. VITAMIN B12 [Concomitant]
     Active Substance: CYANOCOBALAMIN
  3. ATENOLOL. [Concomitant]
     Active Substance: ATENOLOL
  4. METFORMIN [Concomitant]
     Active Substance: METFORMIN HYDROCHLORIDE
  5. TIVICAY [Concomitant]
     Active Substance: DOLUTEGRAVIR SODIUM
  6. GABAPENTIN. [Concomitant]
     Active Substance: GABAPENTIN
  7. ARTHROTEC [Concomitant]
     Active Substance: DICLOFENAC SODIUM\MISOPROSTOL
  8. JANUVIA [Concomitant]
     Active Substance: SITAGLIPTIN PHOSPHATE
  9. LIPITOR [Concomitant]
     Active Substance: ATORVASTATIN CALCIUM
  10. HARVONI [Suspect]
     Active Substance: LEDIPASVIR\SOFOSBUVIR
     Indication: HEPATITIS C
     Dosage: UNK
     Route: 048
     Dates: start: 20160719
  11. PANTOLOC                           /01263204/ [Concomitant]
     Active Substance: PANTOPRAZOLE SODIUM
  12. NICODERM CQ [Concomitant]
     Active Substance: NICOTINE
  13. SEROQUEL [Concomitant]
     Active Substance: QUETIAPINE FUMARATE
  14. RAMIPRIL. [Concomitant]
     Active Substance: RAMIPRIL
  15. ABACAVIR W/LAMIVUDINE [Concomitant]
     Active Substance: ABACAVIR\LAMIVUDINE

REACTIONS (2)
  - Death [Fatal]
  - Fall [Fatal]

NARRATIVE: CASE EVENT DATE: 20161017
